FAERS Safety Report 19802817 (Version 1)
Quarter: 2021Q3

REPORT INFORMATION
  Report Type: Spontaneous
  Country: US (occurrence: US)
  Receive Date: 20210908
  Receipt Date: 20210908
  Transmission Date: 20211014
  Serious: Yes (Hospitalization)
  Sender: FDA-Public Use
  Company Number: None

PATIENT
  Age: 44 Year
  Sex: Female
  Weight: 74.84 kg

DRUGS (1)
  1. EPINEPHRINE INJECTION, USP AUTO?INJECTORS 0.15 MG [Suspect]
     Active Substance: EPINEPHRINE

REACTIONS (1)
  - Injury associated with device [None]

NARRATIVE: CASE EVENT DATE: 20210906
